FAERS Safety Report 4584716-2 (Version None)
Quarter: 2005Q1

REPORT INFORMATION
  Report Type: 
  Country: None (occurrence: None)
  Receive Date: 20050211
  Receipt Date: 20050202
  Transmission Date: 20050727
  Serious: Yes (Life-Threatening, Hospitalization, Other)
  Sender: FDA-Public Use
  Company Number: HQWYE019302FEB05

PATIENT
  Age: 48 Year
  Sex: Male

DRUGS (3)
  1. ZURCALE (PANTOPRAZOLE, TABLET, DELAYED RELEASE) [Suspect]
     Indication: ABDOMINAL PAIN UPPER
     Dosage: 20 MG 1X PER 1 DAY ORAL
     Route: 048
  2. MEBEVERINE (MEBEVERINE) [Concomitant]
  3. ROHYPNOL (FLUNITRAZEPAM) [Concomitant]

REACTIONS (3)
  - ANAPHYLACTIC SHOCK [None]
  - ASTHMA [None]
  - SELF-MEDICATION [None]
